FAERS Safety Report 4986906-3 (Version None)
Quarter: 2006Q2

REPORT INFORMATION
  Report Type: 
  Country: None (occurrence: None)
  Receive Date: 20060501
  Receipt Date: 20060419
  Transmission Date: 20061013
  Serious: Yes (Other)
  Sender: FDA-Public Use
  Company Number: PHBS2006SE05678

PATIENT
  Age: 69 Year
  Sex: Female

DRUGS (10)
  1. AREDIA [Suspect]
     Indication: MULTIPLE MYELOMA
     Route: 065
     Dates: start: 20050101
  2. LIPITOR [Concomitant]
     Route: 065
  3. ANAFRANIL [Concomitant]
     Route: 065
  4. ALVEDON [Concomitant]
     Route: 065
  5. LAXOBERAL [Concomitant]
     Route: 065
  6. OMEPRAZOL [Concomitant]
     Route: 065
  7. DOLCONTIN [Concomitant]
     Route: 065
  8. MYCOSTATIN [Concomitant]
     Route: 065
  9. CIPROXIN [Concomitant]
     Route: 065
  10. PREDNISOLONE [Concomitant]
     Route: 065

REACTIONS (1)
  - OSTEONECROSIS [None]
